FAERS Safety Report 24279572 (Version 1)
Quarter: 2024Q3

REPORT INFORMATION
  Report Type: Report from Study
  Country: CA (occurrence: CA)
  Receive Date: 20240904
  Receipt Date: 20240904
  Transmission Date: 20241016
  Serious: No
  Sender: SANDOZ
  Company Number: CA-002147023-NVSC2021CA133843

PATIENT
  Sex: Female

DRUGS (1)
  1. HYRIMOZ [Suspect]
     Active Substance: ADALIMUMAB-ADAZ
     Indication: Rheumatoid arthritis
     Dosage: 40 MG
     Route: 058
     Dates: start: 20210607

REACTIONS (4)
  - Pollakiuria [Unknown]
  - Arthralgia [Unknown]
  - Product dose omission issue [Unknown]
  - Device issue [Unknown]
